FAERS Safety Report 7583873-3 (Version None)
Quarter: 2011Q2

REPORT INFORMATION
  Report Type: 
  Country: None (occurrence: None)
  Receive Date: 20110623
  Receipt Date: 20110616
  Transmission Date: 20111010
  Serious: No
  Sender: FDA-Public Use
  Company Number: 2011-00674

PATIENT
  Sex: Male

DRUGS (1)
  1. ALL ZICAM PRODUCT [Suspect]

REACTIONS (2)
  - AGEUSIA [None]
  - ANOSMIA [None]
